FAERS Safety Report 17403792 (Version 1)
Quarter: 2020Q1

REPORT INFORMATION
  Report Type: Spontaneous
  Country: US (occurrence: US)
  Receive Date: 20200211
  Receipt Date: 20200211
  Transmission Date: 20200409
  Serious: No
  Sender: FDA-Public Use
  Company Number: US-PERRIGO-19US013971

PATIENT
  Age: 51 Year
  Sex: Female
  Weight: 90.7 kg

DRUGS (4)
  1. CETIRIZINE HYDROCHLORIDE. [Suspect]
     Active Substance: CETIRIZINE HYDROCHLORIDE
     Dosage: 10 MG, QD
     Route: 048
     Dates: start: 201910, end: 20191110
  2. CETIRIZINE HYDROCHLORIDE. [Suspect]
     Active Substance: CETIRIZINE HYDROCHLORIDE
     Indication: SEASONAL ALLERGY
     Dosage: 10 MG, QD
     Route: 048
     Dates: end: 201910
  3. OTHER THERAPEUTIC PRODUCTS [Suspect]
     Active Substance: UNSPECIFIED INGREDIENT
     Indication: ACCIDENTAL EXPOSURE TO PRODUCT
     Dosage: UNKNOWN, UNKNOWN
     Route: 048
     Dates: start: 201910, end: 20191110
  4. LEVOTHYROXINE. [Concomitant]
     Active Substance: LEVOTHYROXINE
     Indication: HYPERTHYROIDISM
     Dosage: UNK
     Route: 065
     Dates: start: 2009

REACTIONS (3)
  - Fatigue [Recovered/Resolved]
  - Somnolence [Recovered/Resolved]
  - Exposure to unspecified agent [Recovered/Resolved]

NARRATIVE: CASE EVENT DATE: 201910
